FAERS Safety Report 5834066-9 (Version None)
Quarter: 2008Q3

REPORT INFORMATION
  Report Type: 
  Country: None (occurrence: None)
  Receive Date: 20080801
  Receipt Date: 20080801
  Transmission Date: 20090109
  Serious: No
  Sender: FDA-Public Use
  Company Number: None

PATIENT
  Age: 59 Year
  Sex: Male

DRUGS (1)
  1. ALISKIREN [Suspect]
     Indication: HYPERTENSION
     Dosage: 150 MG EVERYDAY
     Dates: start: 20080624, end: 20080730

REACTIONS (2)
  - BLOOD PRESSURE ABNORMAL [None]
  - OEDEMA PERIPHERAL [None]
